FAERS Safety Report 8283930 (Version 2)
Quarter: 2012Q4

REPORT INFORMATION
  Report Type: 
  Country: US (occurrence: US)
  Receive Date: 20111212
  Receipt Date: 20121211
  Transmission Date: 20130627
  Serious: No
  Sender: FDA-Public Use
  Company Number: US-ABBOTT-11P-163-0720308-00

PATIENT
  Age: 51 None
  Sex: Female
  Weight: 59.02 kg

DRUGS (6)
  1. VICODIN ES [Suspect]
     Indication: TOOTHACHE
     Dosage: 1/4 tablet
     Dates: start: 20110401, end: 20110401
  2. VICODIN ES [Suspect]
     Indication: HEADACHE
     Dosage: ES
     Route: 048
     Dates: start: 1998, end: 1998
  3. VICODIN ES [Suspect]
     Dates: start: 20120303, end: 20120303
  4. VICODIN [Suspect]
     Indication: PRODUCT USED FOR UNKNOWN INDICATION
     Dates: start: 1998, end: 1998
  5. XANAX [Concomitant]
     Indication: ANXIETY
  6. CENTRUM [Concomitant]
     Indication: PRODUCT USED FOR UNKNOWN INDICATION

REACTIONS (7)
  - Nausea [Recovered/Resolved]
  - Dizziness [Recovered/Resolved]
  - Vasoconstriction [Recovered/Resolved]
  - Nausea [Recovered/Resolved]
  - Dizziness [Recovered/Resolved]
  - Vasoconstriction [Recovered/Resolved]
  - Product taste abnormal [Unknown]
